FAERS Safety Report 22309815 (Version 1)
Quarter: 2023Q2

REPORT INFORMATION
  Report Type: Spontaneous
  Country: US (occurrence: None)
  Receive Date: 20230510
  Receipt Date: 20230510
  Transmission Date: 20230721
  Serious: Yes (Hospitalization)
  Sender: FDA-Public Use
  Company Number: None

PATIENT
  Age: 36 Year
  Sex: Male
  Weight: 72 kg

DRUGS (2)
  1. SULFAMETHOXAZOLE\TRIMETHOPRIM [Suspect]
     Active Substance: SULFAMETHOXAZOLE\TRIMETHOPRIM
     Indication: Bursitis
     Dosage: FREQUENCY : TWICE A DAY;?
     Route: 048
  2. NAPROXEN [Concomitant]
     Active Substance: NAPROXEN
     Dates: start: 20230307, end: 20230319

REACTIONS (1)
  - Drug reaction with eosinophilia and systemic symptoms [None]

NARRATIVE: CASE EVENT DATE: 20230319
